FAERS Safety Report 4777699-3 (Version None)
Quarter: 2005Q3

REPORT INFORMATION
  Report Type: 
  Country: None (occurrence: None)
  Receive Date: 20050923
  Receipt Date: 20050609
  Transmission Date: 20060218
  Serious: Yes (Hospitalization)
  Sender: FDA-Public Use
  Company Number: US-MERCK-0506USA01852

PATIENT
  Age: 60 Year
  Sex: Female
  Weight: 77 kg

DRUGS (15)
  1. VIOXX [Suspect]
     Indication: RHEUMATOID ARTHRITIS
     Route: 048
     Dates: start: 20000101
  2. TYLENOL W/ CODEINE NO. 3 [Concomitant]
     Route: 065
  3. ALTACE [Concomitant]
     Indication: CARDIAC DISORDER
     Route: 065
     Dates: start: 20030101
  4. LIPITOR [Concomitant]
     Indication: BLOOD CHOLESTEROL INCREASED
     Route: 065
     Dates: start: 19960101
  5. ASPIRIN [Concomitant]
     Route: 065
     Dates: start: 19960101
  6. ZOLOFT [Concomitant]
     Indication: DEPRESSION
     Route: 065
     Dates: start: 20030101
  7. TOPROL-XL [Concomitant]
     Indication: HYPERTENSION
     Route: 065
     Dates: start: 19960101
  8. CALCIUM (UNSPECIFIED) [Concomitant]
     Route: 065
  9. PLAVIX [Concomitant]
     Route: 065
     Dates: start: 20030101, end: 20040101
  10. TRICOR [Concomitant]
     Indication: BLOOD CHOLESTEROL INCREASED
     Route: 065
  11. VIOXX [Suspect]
     Indication: ARTHRALGIA
     Route: 048
     Dates: start: 20010101, end: 20040901
  12. VIOXX [Suspect]
     Route: 048
     Dates: start: 20010101, end: 20040901
  13. VIOXX [Suspect]
     Route: 048
     Dates: start: 20000101
  14. VIOXX [Suspect]
     Route: 048
     Dates: start: 20010101, end: 20040901
  15. VIOXX [Suspect]
     Route: 048
     Dates: start: 20010101, end: 20040901

REACTIONS (9)
  - ACUTE MYOCARDIAL INFARCTION [None]
  - ARTHROPATHY [None]
  - CARDIAC DISORDER [None]
  - EPISTAXIS [None]
  - HEART INJURY [None]
  - OSTEOPOROSIS [None]
  - SCIATICA [None]
  - SPINAL DISORDER [None]
  - SYNOVIAL CYST [None]
